FAERS Safety Report 9445513 (Version 1)
Quarter: 2013Q3

REPORT INFORMATION
  Report Type: Spontaneous
  Country: FR (occurrence: FR)
  Receive Date: 20130807
  Receipt Date: 20130807
  Transmission Date: 20140515
  Serious: Yes (Hospitalization)
  Sender: FDA-Public Use
  Company Number: FR-PERRIGO-13FR007821

PATIENT
  Age: 30 Year
  Sex: Female

DRUGS (1)
  1. IBUPROFEN RX 400 MG 373 [Suspect]
     Indication: BACK PAIN
     Dosage: 8 G OVER 2 DAYS
     Route: 048

REACTIONS (12)
  - Inappropriate antidiuretic hormone secretion [Recovered/Resolved]
  - Convulsion [Recovered/Resolved]
  - Renal failure acute [Recovered/Resolved]
  - Pyrexia [Recovered/Resolved]
  - Nausea [Recovered/Resolved]
  - Headache [Recovered/Resolved]
  - Meningism [Recovered/Resolved]
  - Electroencephalogram abnormal [Recovered/Resolved]
  - Hyponatraemia [Recovered/Resolved]
  - Blood aldosterone increased [Recovered/Resolved]
  - Blood creatinine increased [Recovered/Resolved]
  - Blood urea increased [Recovered/Resolved]
